FAERS Safety Report 16779571 (Version 1)
Quarter: 2019Q3

REPORT INFORMATION
  Report Type: Spontaneous
  Country: US (occurrence: US)
  Receive Date: 20190906
  Receipt Date: 20190906
  Transmission Date: 20191005
  Serious: Yes (Death)
  Sender: FDA-Public Use
  Company Number: US-TEVA-2019-US-1104222

PATIENT
  Sex: Female

DRUGS (1)
  1. FENTANYL LOZENGE [Suspect]
     Active Substance: FENTANYL
     Indication: PRODUCT USE IN UNAPPROVED INDICATION
     Dosage: ORAL LOZENGE
     Route: 048

REACTIONS (1)
  - Death [Fatal]
